FAERS Safety Report 23693357 (Version 1)
Quarter: 2024Q2

REPORT INFORMATION
  Report Type: Spontaneous
  Country: US (occurrence: US)
  Receive Date: 20240401
  Receipt Date: 20240401
  Transmission Date: 20240715
  Serious: No
  Sender: FDA-Public Use
  Company Number: US-PFIZER INC-PV202400041982

PATIENT
  Age: 88 Year
  Sex: Female
  Weight: 79.4 kg

DRUGS (4)
  1. IBRANCE [Suspect]
     Active Substance: PALBOCICLIB
     Indication: Breast cancer metastatic
     Dosage: 125 MG, CYCLIC FOR 21 DAYS REST FOR 7 DAYS EVERY 28 DAYS
     Dates: start: 20201101
  2. IBRANCE [Suspect]
     Active Substance: PALBOCICLIB
     Dosage: 100 MG, CYCLIC FOR 21 DAYS REST FOR 7 DAYS EVERY 28 DAYS
     Dates: start: 20210115
  3. IBRANCE [Suspect]
     Active Substance: PALBOCICLIB
     Dosage: 75MG, CYCLIC FOR 21 DAYS REST FOR 7 DAYS EVERY 28 DAYS
     Dates: start: 202110
  4. ANASTROZOLE [Concomitant]
     Active Substance: ANASTROZOLE
     Dosage: UNK

REACTIONS (3)
  - Arthralgia [Unknown]
  - Urine odour abnormal [Unknown]
  - Flank pain [Unknown]

NARRATIVE: CASE EVENT DATE: 20230101
